FAERS Safety Report 7893160-1 (Version None)
Quarter: 2011Q4

REPORT INFORMATION
  Report Type: 
  Country: None (occurrence: None)
  Receive Date: 20111104
  Receipt Date: 20111028
  Transmission Date: 20120403
  Serious: Yes (Hospitalization)
  Sender: FDA-Public Use
  Company Number: US-B.I. PHARMACEUTICALS,INC./RIDGEFIELD-2011-BP-23060BP

PATIENT
  Age: 86 Year
  Sex: Female

DRUGS (3)
  1. MOBIC [Concomitant]
  2. PRADAXA [Suspect]
     Indication: ATRIAL FIBRILLATION
     Dosage: 300 MG
     Route: 048
     Dates: start: 20110920, end: 20110928
  3. COUMADIN [Concomitant]
     Route: 048
     Dates: end: 20110920

REACTIONS (7)
  - HAEMORRHAGE [None]
  - HAEMATOCHEZIA [None]
  - GINGIVAL BLEEDING [None]
  - ABDOMINAL DISCOMFORT [None]
  - MELAENA [None]
  - LOWER GASTROINTESTINAL HAEMORRHAGE [None]
  - RECTAL HAEMORRHAGE [None]
